FAERS Safety Report 9792549 (Version 2)
Quarter: 2017Q4

REPORT INFORMATION
  Report Type: Spontaneous
  Country: US (occurrence: US)
  Receive Date: 20140102
  Receipt Date: 20171228
  Transmission Date: 20180321
  Serious: Yes (Other)
  Sender: FDA-Public Use
  Company Number: US-SANOFI-AVENTIS-2013SA095444

PATIENT
  Sex: Female

DRUGS (10)
  1. AUBAGIO [Suspect]
     Active Substance: TERIFLUNOMIDE
     Indication: MULTIPLE SCLEROSIS
     Route: 048
     Dates: start: 2007
  2. CALCIUM OYSTER SHELL [Concomitant]
  3. FOLIC ACID. [Concomitant]
     Active Substance: FOLIC ACID
  4. VITAMIN B12 [Concomitant]
     Active Substance: CYANOCOBALAMIN
  5. WARFARIN SODIUM. [Concomitant]
     Active Substance: WARFARIN SODIUM
  6. LORATADINE. [Concomitant]
     Active Substance: LORATADINE
  7. TRAMADOL. [Concomitant]
     Active Substance: TRAMADOL
  8. MILNACIPRAN [Concomitant]
     Active Substance: MILNACIPRAN
  9. GABAPENTIN. [Concomitant]
     Active Substance: GABAPENTIN
  10. SALBUTAMOL SULFATE [Concomitant]
     Active Substance: ALBUTEROL SULFATE

REACTIONS (4)
  - Small cell carcinoma [Unknown]
  - Depression [Unknown]
  - Constipation [Unknown]
  - Decreased interest [Unknown]

NARRATIVE: CASE EVENT DATE: 2016
